FAERS Safety Report 7883571-2 (Version None)
Quarter: 2011Q4

REPORT INFORMATION
  Report Type: 
  Country: None (occurrence: None)
  Receive Date: 20111102
  Receipt Date: 20111026
  Transmission Date: 20120403
  Serious: Yes (Hospitalization)
  Sender: FDA-Public Use
  Company Number: FR-BAYER-2011-104863

PATIENT
  Age: 44 Year
  Sex: Female

DRUGS (6)
  1. LERCANIDIPINE [Concomitant]
     Dosage: 20 MG, QD
  2. AMBROXOL [Suspect]
     Indication: BRONCHITIS
     Dosage: UNK
     Dates: start: 20111004, end: 20111004
  3. LEVONORGESTREL [Concomitant]
     Dosage: 1 DF, QD
  4. INNOVAR [Concomitant]
     Dosage: 2 DF, QD
  5. MOXIFLOXACIN HCL [Suspect]
     Indication: BRONCHITIS
     Dosage: 1 DF, ONCE
     Route: 048
     Dates: start: 20111004, end: 20111004
  6. FUNGIZONE [Suspect]
     Indication: ORAL FUNGAL INFECTION

REACTIONS (7)
  - MALAISE [None]
  - TREMOR [None]
  - DIZZINESS [None]
  - MONOPLEGIA [None]
  - TETANY [None]
  - HYPERVENTILATION [None]
  - CHEST DISCOMFORT [None]
